FAERS Safety Report 21038847 (Version 1)
Quarter: 2022Q3

REPORT INFORMATION
  Report Type: Spontaneous
  Country: BR (occurrence: BR)
  Receive Date: 20220704
  Receipt Date: 20220704
  Transmission Date: 20221026
  Serious: Yes (Death)
  Sender: FDA-Public Use
  Company Number: BR-CHEPLA-2022005641

PATIENT
  Age: 24 Year
  Sex: Female

DRUGS (6)
  1. CLONAZEPAM [Suspect]
     Active Substance: CLONAZEPAM
  2. BROMAZEPAM [Suspect]
     Active Substance: BROMAZEPAM
  3. BROMAZEPAM [Suspect]
     Active Substance: BROMAZEPAM
  4. OZEMPIC [Suspect]
     Active Substance: SEMAGLUTIDE
     Indication: Weight loss poor
  5. PROZAC [Suspect]
     Active Substance: FLUOXETINE HYDROCHLORIDE
     Indication: Weight loss poor
  6. LISDEXAMFETAMINE DIMESYLATE [Suspect]
     Active Substance: LISDEXAMFETAMINE DIMESYLATE
     Indication: Weight loss poor

REACTIONS (2)
  - Serotonin syndrome [Fatal]
  - Prescription drug used without a prescription [Recovered/Resolved]
